FAERS Safety Report 15767510 (Version 2)
Quarter: 2019Q1

REPORT INFORMATION
  Report Type: Spontaneous
  Country: US (occurrence: US)
  Receive Date: 20181227
  Receipt Date: 20190110
  Transmission Date: 20190417
  Serious: No
  Sender: FDA-Public Use
  Company Number: PHEH2018US054899

PATIENT
  Age: 76 Year
  Sex: Male

DRUGS (1)
  1. TOBRADEX [Suspect]
     Active Substance: DEXAMETHASONE\TOBRAMYCIN
     Indication: PRODUCT USED FOR UNKNOWN INDICATION
     Dosage: UNK UNK, BID
     Route: 047
     Dates: start: 20181220

REACTIONS (4)
  - Drug ineffective [Unknown]
  - Eyelid irritation [Unknown]
  - Eye pain [Unknown]
  - Eye irritation [Unknown]

NARRATIVE: CASE EVENT DATE: 20181225
